FAERS Safety Report 24082589 (Version 1)
Quarter: 2024Q3

REPORT INFORMATION
  Report Type: Spontaneous
  Country: US (occurrence: US)
  Receive Date: 20240712
  Receipt Date: 20240712
  Transmission Date: 20241016
  Serious: Yes (Hospitalization)
  Sender: AUROBINDO
  Company Number: US-MLMSERVICE-20240626-PI113150-00057-1

PATIENT
  Age: 73 Year
  Sex: Male

DRUGS (1)
  1. ATORVASTATIN [Suspect]
     Active Substance: ATORVASTATIN
     Indication: Hyperlipidaemia
     Dosage: UNK
     Route: 048

REACTIONS (2)
  - Eczema [Recovering/Resolving]
  - Eosinophilia [Recovering/Resolving]
